FAERS Safety Report 6103760-7 (Version None)
Quarter: 2009Q1

REPORT INFORMATION
  Report Type: 
  Country: None (occurrence: None)
  Receive Date: 20090302
  Receipt Date: 20090219
  Transmission Date: 20090719
  Serious: No
  Sender: FDA-Public Use
  Company Number: 2009-191939-NL

PATIENT
  Sex: Female

DRUGS (2)
  1. NUVARING [Suspect]
     Indication: CONTRACEPTION
     Dosage: DF
     Dates: start: 20081001, end: 20090101
  2. NUVARING [Suspect]
     Indication: CONTRACEPTION
     Dosage: DF
     Dates: start: 20090101

REACTIONS (11)
  - ANGINA PECTORIS [None]
  - ASTHENIA [None]
  - BLOOD PRESSURE FLUCTUATION [None]
  - FATIGUE [None]
  - HAEMOGLOBIN DECREASED [None]
  - MENORRHAGIA [None]
  - ORAL HERPES [None]
  - PALPITATIONS [None]
  - RESPIRATORY DISORDER [None]
  - TINNITUS [None]
  - VULVOVAGINAL DISCOMFORT [None]
